FAERS Safety Report 14309755 (Version 2)
Quarter: 2018Q1

REPORT INFORMATION
  Report Type: Spontaneous
  Country: FR (occurrence: FR)
  Receive Date: 20171220
  Receipt Date: 20180206
  Transmission Date: 20180509
  Serious: Yes (Death, Other)
  Sender: FDA-Public Use
  Company Number: FR-GLAXOSMITHKLINE-FR2017194158

PATIENT
  Age: 59 Year
  Sex: Male
  Weight: 74 kg

DRUGS (13)
  1. CORDARONE [Suspect]
     Active Substance: AMIODARONE HYDROCHLORIDE
     Dosage: UNK
     Route: 042
  2. CORDARONE [Suspect]
     Active Substance: AMIODARONE HYDROCHLORIDE
     Indication: ATRIAL FIBRILLATION
     Dosage: UNK
     Route: 042
  3. CALCIPARINE [Suspect]
     Active Substance: HEPARIN CALCIUM
     Dosage: UNK
     Route: 058
  4. MERONEM [Suspect]
     Active Substance: MEROPENEM
     Indication: LUNG DISORDER
     Dosage: UNK
     Route: 042
  5. TRIATEC [Suspect]
     Active Substance: RAMIPRIL
     Dosage: UNK
     Route: 048
  6. ZOVIRAX [Suspect]
     Active Substance: ACYCLOVIR
     Dosage: UNK
     Route: 042
  7. ZOVIRAX [Suspect]
     Active Substance: ACYCLOVIR
     Indication: PROPHYLAXIS
     Dosage: UNK
     Route: 042
  8. BACTRIM [Suspect]
     Active Substance: SULFAMETHOXAZOLE\TRIMETHOPRIM
     Indication: LUNG DISORDER
     Dosage: UNK
     Route: 042
  9. CERTICAN [Suspect]
     Active Substance: EVEROLIMUS
     Indication: PROPHYLAXIS AGAINST TRANSPLANT REJECTION
     Dosage: UNK
     Route: 048
  10. CERTICAN [Suspect]
     Active Substance: EVEROLIMUS
     Route: 048
  11. BACTRIM [Suspect]
     Active Substance: SULFAMETHOXAZOLE\TRIMETHOPRIM
     Dosage: UNK
     Route: 042
  12. TRIATEC [Suspect]
     Active Substance: RAMIPRIL
     Indication: HYPERTENSION
     Dosage: UNK
     Route: 048
  13. CALCIPARINE [Suspect]
     Active Substance: HEPARIN CALCIUM
     Indication: THROMBOSIS PROPHYLAXIS
     Dosage: UNK
     Route: 058

REACTIONS (7)
  - Colitis [Fatal]
  - Acute kidney injury [Not Recovered/Not Resolved]
  - Alveolitis necrotising [Fatal]
  - Dermatitis bullous [Fatal]
  - Rash maculo-papular [Not Recovered/Not Resolved]
  - Face oedema [Recovering/Resolving]
  - Histiocytosis haematophagic [Not Recovered/Not Resolved]

NARRATIVE: CASE EVENT DATE: 20170922
